FAERS Safety Report 4947007-3 (Version None)
Quarter: 2006Q1

REPORT INFORMATION
  Report Type: 
  Country: None (occurrence: None)
  Receive Date: 20060317
  Receipt Date: 20060309
  Transmission Date: 20060701
  Serious: Yes (Other)
  Sender: FDA-Public Use
  Company Number: JP-ROCHE-439839

PATIENT
  Age: 52 Year
  Sex: Male

DRUGS (4)
  1. CELLCEPT [Suspect]
     Route: 048
     Dates: end: 20051215
  2. PROGRAF [Concomitant]
     Route: 048
  3. ZEFFIX [Concomitant]
     Route: 048
  4. HEPSERA [Concomitant]
     Route: 048

REACTIONS (1)
  - MUSCLE ATROPHY [None]
